FAERS Safety Report 13927392 (Version 3)
Quarter: 2017Q4

REPORT INFORMATION
  Report Type: Spontaneous
  Country: US (occurrence: US)
  Receive Date: 20170901
  Receipt Date: 20171208
  Transmission Date: 20180320
  Serious: Yes (Hospitalization)
  Sender: FDA-Public Use
  Company Number: US-ASTRAZENECA-2017SE88028

PATIENT
  Age: 49 Year
  Sex: Male
  Weight: 86.2 kg

DRUGS (15)
  1. SPIRIVA RESPIMAT [Concomitant]
     Active Substance: TIOTROPIUM BROMIDE
     Indication: LUNG DISORDER
     Dosage: 2.5MCG 2 PUFFS DAILY IN MORNING
     Route: 055
     Dates: start: 201411
  2. PAXIL GENERIC [Concomitant]
     Indication: MOOD ALTERED
     Dates: start: 201411
  3. SYMBICORT [Suspect]
     Active Substance: BUDESONIDE\FORMOTEROL FUMARATE DIHYDRATE
     Indication: LUNG DISORDER
     Dosage: 160/4.5 UG, 2 PUFFS TWO TIMES A DAY
     Route: 055
     Dates: start: 201411
  4. IPRATROPIUM BROMIDE. [Concomitant]
     Active Substance: IPRATROPIUM BROMIDE
     Indication: LUNG DISORDER
     Dosage: 5MG/3ML ONE VIAL 4-5 TIMES DAILY OR Q4 HOURS
     Route: 055
     Dates: start: 201411
  5. SYMBICORT [Suspect]
     Active Substance: BUDESONIDE\FORMOTEROL FUMARATE DIHYDRATE
     Indication: DYSPNOEA
     Route: 055
  6. CRESTOR [Suspect]
     Active Substance: ROSUVASTATIN CALCIUM
     Indication: BLOOD CHOLESTEROL ABNORMAL
     Route: 048
  7. CLONAZEPAM. [Concomitant]
     Active Substance: CLONAZEPAM
     Indication: DRUG THERAPY
     Dates: start: 201411
  8. SYMBICORT [Suspect]
     Active Substance: BUDESONIDE\FORMOTEROL FUMARATE DIHYDRATE
     Indication: LUNG DISORDER
     Route: 055
  9. PROAIR HFA [Concomitant]
     Active Substance: ALBUTEROL SULFATE
     Indication: LUNG DISORDER
     Dosage: 90MCG 2 PUFFS Q 4 HOURS AS NEEDED
     Route: 055
     Dates: start: 201411
  10. OXYGEN. [Concomitant]
     Active Substance: OXYGEN
     Dosage: AS NEEDED 1.5-2 L
  11. SYMBICORT [Suspect]
     Active Substance: BUDESONIDE\FORMOTEROL FUMARATE DIHYDRATE
     Indication: DYSPNOEA
     Dosage: 160/4.5 UG, 2 PUFFS TWO TIMES A DAY
     Route: 055
     Dates: start: 201411
  12. ENALAPRIL MALEATE. [Concomitant]
     Active Substance: ENALAPRIL MALEATE
     Indication: CARDIOVASCULAR EVENT PROPHYLAXIS
     Dates: start: 201612
  13. ALBUTEROL SULFATE. [Concomitant]
     Active Substance: ALBUTEROL SULFATE
     Indication: WHEEZING
     Dosage: 2.5MG/3ML ONE VIAL Q2 HRS AS NEEDED
     Route: 055
     Dates: start: 201411
  14. FUROSEMIDE. [Concomitant]
     Active Substance: FUROSEMIDE
     Indication: PULMONARY OEDEMA
     Dates: start: 201411
  15. ASPIRIN. [Concomitant]
     Active Substance: ASPIRIN
     Indication: CARDIAC DISORDER

REACTIONS (7)
  - Irritability [Unknown]
  - Off label use [Unknown]
  - Device issue [Unknown]
  - Lung infection [Unknown]
  - Product use issue [Unknown]
  - Pneumothorax [Unknown]
  - Dry mouth [Unknown]

NARRATIVE: CASE EVENT DATE: 2007
